FAERS Safety Report 8177945-2 (Version None)
Quarter: 2012Q1

REPORT INFORMATION
  Report Type: 
  Country: None (occurrence: None)
  Receive Date: 20120130
  Receipt Date: 20110615
  Transmission Date: 20120608
  Serious: Yes (Hospitalization, Other)
  Sender: FDA-Public Use
  Company Number: 035439

PATIENT
  Sex: Male

DRUGS (3)
  1. KEPPRA [Suspect]
     Dates: start: 20110427
  2. DILANTIN [Suspect]
     Dates: start: 20110419, end: 20110426
  3. SEPTRA [Concomitant]

REACTIONS (1)
  - STEVENS-JOHNSON SYNDROME [None]
